FAERS Safety Report 6140754-X (Version None)
Quarter: 2009Q2

REPORT INFORMATION
  Report Type: 
  Country: None (occurrence: None)
  Receive Date: 20090402
  Receipt Date: 20090402
  Transmission Date: 20091009
  Serious: Yes (Disabling)
  Sender: FDA-Public Use
  Company Number: PHHO2002BE03801

PATIENT
  Sex: Female
  Weight: 68 kg

DRUGS (2)
  1. CGS 20267 T30748+ [Suspect]
     Indication: BREAST CANCER
     Dosage: 2.5 MG, QD
     Route: 048
     Dates: start: 20011113, end: 20020514
  2. ELTHYRONE [Concomitant]
     Indication: HYPOTHYROIDISM

REACTIONS (2)
  - ARTHRALGIA [None]
  - MYALGIA [None]
